FAERS Safety Report 8552596-6 (Version None)
Quarter: 2012Q3

REPORT INFORMATION
  Report Type: 
  Country: None (occurrence: None)
  Receive Date: 20120719
  Receipt Date: 20120713
  Transmission Date: 20120928
  Serious: Yes (Death, Hospitalization)
  Sender: FDA-Public Use
  Company Number: 136614

PATIENT
  Age: 67 Year
  Sex: Female

DRUGS (1)
  1. MIDAZOLAM HCL [Suspect]
     Indication: CONVULSION
     Dosage: UNKNOWN

REACTIONS (1)
  - HYPOTHERMIA [None]
